FAERS Safety Report 6594774-1 (Version None)
Quarter: 2010Q1

REPORT INFORMATION
  Report Type: 
  Country: None (occurrence: None)
  Receive Date: 20100222
  Receipt Date: 20100208
  Transmission Date: 20100710
  Serious: Yes (Life-Threatening, Other)
  Sender: FDA-Public Use
  Company Number: GB-MYLANLABS-2010S1002116

PATIENT
  Age: 59 Year
  Sex: Male
  Weight: 80 kg

DRUGS (3)
  1. VERAPAMIL [Suspect]
     Indication: DRUG USE FOR UNKNOWN INDICATION
  2. TENORETIC 100 [Suspect]
     Indication: HYPERTENSION
  3. ALCOHOL [Concomitant]
     Indication: DRUG USE FOR UNKNOWN INDICATION

REACTIONS (7)
  - CARDIAC ARREST [None]
  - DRUG HALF-LIFE INCREASED [None]
  - HYPERGLYCAEMIA [None]
  - HYPOKALAEMIA [None]
  - METABOLIC ACIDOSIS [None]
  - OLIGURIA [None]
  - OVERDOSE [None]
